FAERS Safety Report 14498145 (Version 3)
Quarter: 2018Q2

REPORT INFORMATION
  Report Type: Spontaneous
  Country: FR (occurrence: FR)
  Receive Date: 20180207
  Receipt Date: 20180612
  Transmission Date: 20180711
  Serious: Yes (Congenital Anomaly, Other)
  Sender: FDA-Public Use
  Company Number: FR-ABBVIE-18P-056-2245768-00

PATIENT
  Sex: Male

DRUGS (1)
  1. DEPAKINE [Suspect]
     Active Substance: VALPROATE SODIUM
     Indication: MATERNAL EXPOSURE TIMING UNSPECIFIED
     Route: 064

REACTIONS (22)
  - Testicular disorder [Unknown]
  - Talipes [Unknown]
  - Kyphosis [Unknown]
  - Joint laxity [Unknown]
  - Lordosis [Unknown]
  - Obstructive airways disorder [Unknown]
  - Arachnodactyly [Unknown]
  - Brachydactyly [Unknown]
  - Strabismus [Unknown]
  - Neurodevelopmental disorder [Unknown]
  - Cognitive disorder [Unknown]
  - Limb malformation [Unknown]
  - Cough [Unknown]
  - Dysmorphism [Not Recovered/Not Resolved]
  - Congenital knee deformity [Unknown]
  - Respiratory muscle weakness [Unknown]
  - Joint hyperextension [Unknown]
  - Congenital genital malformation [Unknown]
  - Migraine [Unknown]
  - Speech disorder developmental [Unknown]
  - Eye disorder [Unknown]
  - Foetal exposure during pregnancy [Unknown]

NARRATIVE: CASE EVENT DATE: 200210
